FAERS Safety Report 5598709-X (Version None)
Quarter: 2008Q1

REPORT INFORMATION
  Report Type: 
  Country: None (occurrence: None)
  Receive Date: 20080122
  Receipt Date: 20080110
  Transmission Date: 20080703
  Serious: Yes (Other)
  Sender: FDA-Public Use
  Company Number: GB-ELI_LILLY_AND_COMPANY-GB200712004114

PATIENT
  Age: 72 Year
  Sex: Male
  Weight: 75 kg

DRUGS (10)
  1. YENTREVE [Suspect]
     Indication: URINARY INCONTINENCE
     Dosage: 20 MG, UNKNOWN
     Route: 048
     Dates: start: 20061201
  2. ASPIRIN [Concomitant]
     Dosage: 75 MG, DAILY (1/D)
     Route: 048
     Dates: start: 19980701
  3. ATORVASTATIN [Concomitant]
     Dosage: UNK, UNKNOWN
     Route: 048
     Dates: start: 20020101, end: 20050701
  4. BENDROFLUMETHIAZIDE [Concomitant]
     Dosage: 2.5 MG, DAILY (1/D)
     Route: 048
     Dates: start: 20030101
  5. DOCUSATE SODIUM [Concomitant]
     Dosage: 200 MG, 2/D
     Route: 048
     Dates: start: 19990101
  6. FINASTERIDE [Concomitant]
     Dosage: 5 MG, DAILY (1/D)
     Route: 048
     Dates: start: 20071001
  7. ISPAGHULA HUSK [Concomitant]
     Dosage: 1 D/F, 2/D
     Dates: start: 20000101
  8. PROPRANOLOL HYDROCHLORIDE [Concomitant]
     Dosage: 80 MG, DAILY (1/D)
     Route: 048
     Dates: start: 19900101
  9. SENNA [Concomitant]
     Dosage: 1 D/F, UNKNOWN
     Dates: start: 20000101
  10. SIMVASTATIN [Concomitant]
     Dosage: 40 MG, DAILY (1/D)
     Route: 048
     Dates: start: 20050701

REACTIONS (2)
  - ANGINA PECTORIS [None]
  - MYOCARDIAL ISCHAEMIA [None]
